FAERS Safety Report 12830448 (Version 2)
Quarter: 2017Q3

REPORT INFORMATION
  Report Type: Spontaneous
  Country: US (occurrence: US)
  Receive Date: 20161007
  Receipt Date: 20170928
  Transmission Date: 20171127
  Serious: No
  Sender: FDA-Public Use
  Company Number: US-SA-2016SA133747

PATIENT
  Age: 66 Year
  Sex: Male

DRUGS (14)
  1. AUBAGIO [Suspect]
     Active Substance: TERIFLUNOMIDE
     Indication: RELAPSING-REMITTING MULTIPLE SCLEROSIS
     Route: 048
     Dates: start: 20160719
  2. RAMIPRIL. [Concomitant]
     Active Substance: RAMIPRIL
  3. TIZANIDINE. [Concomitant]
     Active Substance: TIZANIDINE
  4. PREVIDENT [Concomitant]
     Active Substance: SODIUM FLUORIDE
  5. AUBAGIO [Suspect]
     Active Substance: TERIFLUNOMIDE
     Indication: RELAPSING-REMITTING MULTIPLE SCLEROSIS
     Route: 048
     Dates: start: 20160801
  6. AUBAGIO [Suspect]
     Active Substance: TERIFLUNOMIDE
     Indication: RELAPSING-REMITTING MULTIPLE SCLEROSIS
     Route: 048
     Dates: start: 20170329
  7. VITAMIN D [Concomitant]
     Active Substance: CHOLECALCIFEROL
     Dosage: DOSE:50000 UNIT(S)
  8. OXYBUTYNIN [Concomitant]
     Active Substance: OXYBUTYNIN
  9. PRAMIPEXOLE. [Concomitant]
     Active Substance: PRAMIPEXOLE
  10. CLOPIDOGREL [Concomitant]
     Active Substance: CLOPIDOGREL BISULFATE
  11. METOPROLOL. [Concomitant]
     Active Substance: METOPROLOL
  12. ASPIRIN. [Concomitant]
     Active Substance: ASPIRIN
  13. LOVASTATIN. [Concomitant]
     Active Substance: LOVASTATIN
  14. LATANOPROST. [Concomitant]
     Active Substance: LATANOPROST

REACTIONS (4)
  - Abdominal discomfort [Recovered/Resolved]
  - Hypoaesthesia [Unknown]
  - Paraesthesia [Unknown]
  - Infection [Not Recovered/Not Resolved]

NARRATIVE: CASE EVENT DATE: 2016
